FAERS Safety Report 20561528 (Version 2)
Quarter: 2022Q1

REPORT INFORMATION
  Report Type: Other
  Country: US (occurrence: None)
  Receive Date: 20220307
  Receipt Date: 20220315
  Transmission Date: 20220424
  Serious: Yes (Other)
  Sender: FDA-Public Use
  Company Number: US-ROCHE-3039589

PATIENT
  Sex: Female
  Weight: 118.86 kg

DRUGS (16)
  1. OCREVUS [Suspect]
     Active Substance: OCRELIZUMAB
     Indication: Multiple sclerosis
     Dosage: INITIALLY 300 MG FOR DAY 1 AND DAY 15; DAY OF TREATMENT: 14/APR/2021,27/OCT/2021.
     Route: 042
  2. OCREVUS [Suspect]
     Active Substance: OCRELIZUMAB
     Indication: Relapsing-remitting multiple sclerosis
  3. ARIPIPRAZOLE [Concomitant]
     Active Substance: ARIPIPRAZOLE
  4. CLONAZEPAM [Concomitant]
     Active Substance: CLONAZEPAM
     Route: 048
  5. DOCUSATE [Concomitant]
     Active Substance: DOCUSATE
  6. DICLOFENAC [Concomitant]
     Active Substance: DICLOFENAC
  7. ESCITALOPRAM [Concomitant]
     Active Substance: ESCITALOPRAM OXALATE
  8. GABAPENTIN [Concomitant]
     Active Substance: GABAPENTIN
  9. LISINOPRIL [Concomitant]
     Active Substance: LISINOPRIL
  10. MELOXICAM [Concomitant]
     Active Substance: MELOXICAM
  11. PREGABALIN [Concomitant]
     Active Substance: PREGABALIN
  12. TRAZODONE [Concomitant]
     Active Substance: TRAZODONE HYDROCHLORIDE
  13. GOLYTELY [Concomitant]
     Active Substance: POLYETHYLENE GLYCOL 3350\POTASSIUM CHLORIDE\SODIUM BICARBONATE\SODIUM CHLORIDE\SODIUM SULFATE
  14. TYLENOL [Concomitant]
     Active Substance: ACETAMINOPHEN
  15. SOLU-MEDROL [Concomitant]
     Active Substance: METHYLPREDNISOLONE SODIUM SUCCINATE
  16. BENADRYL [Concomitant]
     Active Substance: DIPHENHYDRAMINE HYDROCHLORIDE

REACTIONS (5)
  - Urinary tract infection [Unknown]
  - Depression [Unknown]
  - Anxiety [Unknown]
  - Hypertension [Unknown]
  - Gout [Unknown]
